FAERS Safety Report 23104757 (Version 1)
Quarter: 2023Q4

REPORT INFORMATION
  Report Type: Spontaneous
  Country: GB (occurrence: GB)
  Receive Date: 20231025
  Receipt Date: 20231025
  Transmission Date: 20240110
  Serious: Yes (Other)
  Sender: FDA-Public Use
  Company Number: GB-SAMSUNG BIOEPIS-SB-2023-22519

PATIENT
  Age: 83 Year
  Sex: Female

DRUGS (2)
  1. AMOXICILLIN [Suspect]
     Active Substance: AMOXICILLIN
     Indication: Klebsiella urinary tract infection
     Dosage: UNKNOWN
     Route: 065
  2. ETANERCEPT [Suspect]
     Active Substance: ETANERCEPT
     Indication: Psoriatic arthropathy
     Route: 058
     Dates: start: 20230525

REACTIONS (6)
  - Klebsiella urinary tract infection [Not Recovered/Not Resolved]
  - Urinary tract infection [Unknown]
  - Pathogen resistance [Unknown]
  - Rheumatoid arthritis [Unknown]
  - Depressed mood [Unknown]
  - Frustration tolerance decreased [Unknown]
